FAERS Safety Report 6057590-5 (Version None)
Quarter: 2009Q1

REPORT INFORMATION
  Report Type: 
  Country: None (occurrence: None)
  Receive Date: 20090127
  Receipt Date: 20090127
  Transmission Date: 20090719
  Serious: Yes (Disabling, Other)
  Sender: FDA-Public Use
  Company Number: None

PATIENT
  Age: 28 Year
  Sex: Female
  Weight: 104.3273 kg

DRUGS (2)
  1. MIRENA [Suspect]
     Indication: CONTRACEPTION
     Dosage: EVERY 5 YRS VAG ALMOST A YEAR
     Route: 067
     Dates: start: 20080326
  2. LEXAPRO [Concomitant]

REACTIONS (19)
  - ABDOMINAL DISTENSION [None]
  - ACNE [None]
  - AMNESIA [None]
  - APATHY [None]
  - BACK PAIN [None]
  - DEPRESSION [None]
  - DISTURBANCE IN ATTENTION [None]
  - DIZZINESS [None]
  - DYSPAREUNIA [None]
  - FATIGUE [None]
  - GASTRIC DISORDER [None]
  - HEADACHE [None]
  - INSOMNIA [None]
  - LIBIDO DECREASED [None]
  - MENSTRUATION DELAYED [None]
  - MOOD SWINGS [None]
  - MUSCLE SPASMS [None]
  - SKIN EXFOLIATION [None]
  - WEIGHT INCREASED [None]
